FAERS Safety Report 18530477 (Version 1)
Quarter: 2020Q4

REPORT INFORMATION
  Report Type: Spontaneous
  Country: US (occurrence: US)
  Receive Date: 20201121
  Receipt Date: 20201121
  Transmission Date: 20210114
  Serious: Yes (Hospitalization, Other)
  Sender: FDA-Public Use
  Company Number: US-ABBVIE-20K-163-3652779-00

PATIENT
  Sex: Male
  Weight: 104.42 kg

DRUGS (4)
  1. TESTOSTERONE CYPIONATE. [Concomitant]
     Active Substance: TESTOSTERONE CYPIONATE
     Indication: BLOOD TESTOSTERONE DECREASED
  2. DICLOFENAC [Concomitant]
     Active Substance: DICLOFENAC
     Indication: ARTHRALGIA
  3. ANDROGEL [Suspect]
     Active Substance: TESTOSTERONE
     Indication: BLOOD TESTOSTERONE DECREASED
     Dosage: 3 PUMPS DALIY
     Route: 061
     Dates: start: 2004, end: 2018
  4. CABERGOLINE. [Concomitant]
     Active Substance: CABERGOLINE
     Indication: BLOOD PROLACTIN INCREASED

REACTIONS (14)
  - Hip surgery [Recovered/Resolved]
  - Periprosthetic metallosis [Unknown]
  - Hip surgery [Recovered/Resolved]
  - Procedural pain [Recovered/Resolved]
  - Procedural pain [Recovered/Resolved]
  - Fall [Recovered/Resolved]
  - Procedural pain [Unknown]
  - Rotator cuff syndrome [Recovered/Resolved]
  - Blood prolactin increased [Recovered/Resolved]
  - Muscle strain [Recovered/Resolved]
  - Fear [Not Recovered/Not Resolved]
  - Procedural pain [Recovered/Resolved]
  - Procedural pain [Recovered/Resolved]
  - Haematocrit increased [Not Recovered/Not Resolved]

NARRATIVE: CASE EVENT DATE: 2008
